FAERS Safety Report 12246069 (Version 1)
Quarter: 2016Q2

REPORT INFORMATION
  Report Type: Spontaneous
  Country: US (occurrence: None)
  Receive Date: 20160406
  Receipt Date: 20160406
  Transmission Date: 20160815
  Serious: No
  Sender: FDA-Public Use
  Company Number: None

PATIENT
  Age: 40 Year
  Sex: Female

DRUGS (1)
  1. COPAXONE [Suspect]
     Active Substance: GLATIRAMER ACETATE
     Indication: PRODUCT USED FOR UNKNOWN INDICATION
     Route: 058
     Dates: start: 20160301

REACTIONS (5)
  - Asthenia [None]
  - Blood pressure decreased [None]
  - Dizziness [None]
  - Fatigue [None]
  - Treatment noncompliance [None]

NARRATIVE: CASE EVENT DATE: 20160404
